FAERS Safety Report 14770672 (Version 5)
Quarter: 2019Q2

REPORT INFORMATION
  Report Type: Spontaneous
  Country: FR (occurrence: FR)
  Receive Date: 20180417
  Receipt Date: 20190515
  Transmission Date: 20190711
  Serious: Yes (Hospitalization, Other)
  Sender: FDA-Public Use
  Company Number: FR-BAUSCH-BL-2018-009670

PATIENT
  Age: 62 Year
  Sex: Female

DRUGS (15)
  1. JANUMET [Suspect]
     Active Substance: METFORMIN HYDROCHLORIDE\SITAGLIPTIN PHOSPHATE
     Dosage: IN THE MORNING (1)
     Route: 048
  2. JANUMET [Suspect]
     Active Substance: METFORMIN HYDROCHLORIDE\SITAGLIPTIN PHOSPHATE
     Dosage: IN THE MORNING 8 AM AND IN THE EVENING 8 PM (2)
     Route: 048
     Dates: start: 20180321
  3. DIAMICRON [Suspect]
     Active Substance: GLICLAZIDE
     Indication: DIABETES MELLITUS
     Dosage: 2 TABLETS, IN THE MORNING
     Route: 065
  4. METFORMIN [Suspect]
     Active Substance: METFORMIN HYDROCHLORIDE
     Indication: DIABETES MELLITUS
     Dosage: 1000 MG, AT MIDDAY (1)
     Route: 048
  5. HEMI-DAONIL [Suspect]
     Active Substance: GLYBURIDE
     Dosage: HALF AN HOUR BEFORE THE USUAL TIME (1)
     Route: 048
     Dates: end: 20180320
  6. LANTUS [Suspect]
     Active Substance: INSULIN GLARGINE
     Dosage: IN THE EVENING (1)
     Route: 051
  7. COKENZEN [Concomitant]
     Active Substance: CANDESARTAN CILEXETIL\HYDROCHLOROTHIAZIDE
     Indication: HYPERTENSION
     Route: 065
  8. JANUMET [Suspect]
     Active Substance: METFORMIN HYDROCHLORIDE\SITAGLIPTIN PHOSPHATE
     Indication: DIABETES MELLITUS
     Dosage: MORNING AND EVENING(2)
     Route: 048
  9. METFORMIN [Suspect]
     Active Substance: METFORMIN HYDROCHLORIDE
     Dosage: IN THE MORNING AND IN THE EVENING (2)
     Route: 065
  10. JANUMET [Suspect]
     Active Substance: METFORMIN HYDROCHLORIDE\SITAGLIPTIN PHOSPHATE
     Dosage: TWICE DAILY (2)
     Route: 048
  11. NOVORAPID [Suspect]
     Active Substance: INSULIN ASPART
     Indication: PRODUCT USED FOR UNKNOWN INDICATION
     Dosage: 3 IU, QAM (EVERY MORNING)
     Route: 065
     Dates: start: 20180321
  12. HEMI-DAONIL [Suspect]
     Active Substance: GLYBURIDE
     Indication: DIABETES MELLITUS
     Route: 048
  13. LANTUS [Suspect]
     Active Substance: INSULIN GLARGINE
     Indication: DIABETES MELLITUS
     Dosage: IN THE EVENING (1)
     Route: 065
  14. INSULIN [Suspect]
     Active Substance: INSULIN NOS
     Indication: DIABETES MELLITUS
     Dosage: RAPID-ACTING INSULIN, AT MIDDAY
     Route: 065
  15. INSULIN [Suspect]
     Active Substance: INSULIN NOS
     Dosage: UNK
     Route: 065

REACTIONS (10)
  - Weight decreased [Unknown]
  - Hypoglycaemia [Not Recovered/Not Resolved]
  - Heart rate increased [Not Recovered/Not Resolved]
  - Hyperglycaemia [Not Recovered/Not Resolved]
  - Inappropriate schedule of product administration [Unknown]
  - Hypertensive crisis [Unknown]
  - Blood pressure decreased [Not Recovered/Not Resolved]
  - Chest pain [Unknown]
  - Gout [Not Recovered/Not Resolved]
  - Palpitations [Not Recovered/Not Resolved]

NARRATIVE: CASE EVENT DATE: 201712
